FAERS Safety Report 6443635-7 (Version None)
Quarter: 2009Q4

REPORT INFORMATION
  Report Type: 
  Country: None (occurrence: None)
  Receive Date: 20091113
  Receipt Date: 20091104
  Transmission Date: 20100525
  Serious: Yes (Hospitalization)
  Sender: FDA-Public Use
  Company Number: 2009AC000071

PATIENT
  Age: 69 Year
  Sex: Female

DRUGS (28)
  1. DIGOXIN [Suspect]
     Dosage: 0.25 MG; PO
     Route: 048
     Dates: start: 20071201
  2. SPIRONOLACTONE [Concomitant]
  3. COREG [Concomitant]
  4. LISINOPRIL [Concomitant]
  5. COUMADIN [Concomitant]
  6. HYDROCHLOROTHIAZIDE [Concomitant]
  7. PROPHYLTHIURACIL [Concomitant]
  8. DARVOCET-N 100 [Concomitant]
  9. K-DUR [Concomitant]
  10. MECLIZINE [Concomitant]
  11. TAGAMET [Concomitant]
  12. TYLENOL (CAPLET) [Concomitant]
  13. PROPRANOLOL [Concomitant]
  14. PREMPRO [Concomitant]
  15. PROPOXYPHEN-APAP [Concomitant]
  16. HYDROCODONE [Concomitant]
  17. WARFARIN SODIUM [Concomitant]
  18. CIPROFLOXACIN [Concomitant]
  19. CARVEDILOL [Concomitant]
  20. SPIRONOLACTONE [Concomitant]
  21. LISINOPRIL [Concomitant]
  22. MAGNESIUM OXIDE [Concomitant]
  23. HYDROCHLOROTHIAZIDE [Concomitant]
  24. KEFLEX [Concomitant]
  25. TOPICORT CREAM [Concomitant]
  26. DARVOCET-N 100 [Concomitant]
  27. MEDROL [Concomitant]
  28. TAGAMET [Concomitant]

REACTIONS (41)
  - ABDOMINAL DISCOMFORT [None]
  - ABDOMINAL PAIN [None]
  - ANHEDONIA [None]
  - AORTIC VALVE INCOMPETENCE [None]
  - AORTIC VALVE SCLEROSIS [None]
  - ASTHENIA [None]
  - ATRIAL FIBRILLATION [None]
  - BLOOD CALCIUM INCREASED [None]
  - CARDIAC ANEURYSM [None]
  - CARDIAC MURMUR [None]
  - CARDIOMYOPATHY [None]
  - CELLULITIS [None]
  - DIARRHOEA [None]
  - DRUG HYPERSENSITIVITY [None]
  - DYSPNOEA EXERTIONAL [None]
  - ECONOMIC PROBLEM [None]
  - EMOTIONAL DISORDER [None]
  - FOOT DEFORMITY [None]
  - GASTROOESOPHAGEAL REFLUX DISEASE [None]
  - HAEMORRHAGE [None]
  - HIATUS HERNIA [None]
  - HYPERKERATOSIS [None]
  - HYPERLIPIDAEMIA [None]
  - HYPOAESTHESIA [None]
  - HYPOMAGNESAEMIA [None]
  - INTERMITTENT CLAUDICATION [None]
  - INTERNATIONAL NORMALISED RATIO INCREASED [None]
  - LEFT VENTRICULAR DYSFUNCTION [None]
  - LEFT VENTRICULAR HYPERTROPHY [None]
  - MENTAL DISORDER [None]
  - MITRAL VALVE INCOMPETENCE [None]
  - MULTIPLE INJURIES [None]
  - MUSCULOSKELETAL PAIN [None]
  - NEUROPATHY PERIPHERAL [None]
  - OSTEOARTHRITIS [None]
  - PAIN [None]
  - PAIN IN EXTREMITY [None]
  - PARAESTHESIA [None]
  - PROTHROMBIN TIME PROLONGED [None]
  - SOCIAL PROBLEM [None]
  - VENTRICULAR DYSKINESIA [None]
